FAERS Safety Report 7572867-X (Version None)
Quarter: 2011Q2

REPORT INFORMATION
  Report Type: 
  Country: None (occurrence: None)
  Receive Date: 20110627
  Receipt Date: 20110620
  Transmission Date: 20111010
  Serious: Yes (Life-Threatening, Hospitalization)
  Sender: FDA-Public Use
  Company Number: US-ELI_LILLY_AND_COMPANY-US201106006508

PATIENT
  Age: 35 Year
  Sex: Female

DRUGS (9)
  1. ANTIBIOTICS [Concomitant]
  2. PROPOFOL [Concomitant]
  3. HUMALOG [Suspect]
     Indication: METABOLIC ABNORMALITY MANAGEMENT
     Dosage: UNK
  4. ADDERALL 10 [Concomitant]
  5. XANAX [Concomitant]
  6. GEODON [Concomitant]
  7. FRAGMIN [Concomitant]
  8. CYMBALTA [Suspect]
     Dosage: 120 MG, EACH EVENING
     Route: 050
  9. PROTONIX [Concomitant]

REACTIONS (2)
  - ENDOTRACHEAL INTUBATION [None]
  - GASTROINTESTINAL TUBE INSERTION [None]
